FAERS Safety Report 19682768 (Version 1)
Quarter: 2021Q3

REPORT INFORMATION
  Report Type: Report from Study
  Country: GB (occurrence: GB)
  Receive Date: 20210810
  Receipt Date: 20210810
  Transmission Date: 20211014
  Serious: Yes (Hospitalization)
  Sender: FDA-Public Use
  Company Number: GB-TAKEDA-2019TUS061006

PATIENT
  Sex: Male

DRUGS (2)
  1. VEDOLIZUMAB [Suspect]
     Active Substance: VEDOLIZUMAB
     Indication: INFLAMMATORY BOWEL DISEASE
     Dosage: UNK
     Route: 042
     Dates: start: 20170803
  2. MESALAZINE [Concomitant]
     Active Substance: MESALAMINE
     Dosage: UNK

REACTIONS (1)
  - Cluster headache [Not Recovered/Not Resolved]

NARRATIVE: CASE EVENT DATE: 20190426
